FAERS Safety Report 4326811-9 (Version None)
Quarter: 2004Q1

REPORT INFORMATION
  Report Type: 
  Country: None (occurrence: None)
  Receive Date: 20040330
  Receipt Date: 20040319
  Transmission Date: 20041129
  Serious: Yes (Other)
  Sender: FDA-Public Use
  Company Number: PHEH2004US03284

PATIENT
  Age: 64 Year
  Sex: Male

DRUGS (2)
  1. LOPRESSOR [Suspect]
     Dosage: UNK/UNK
  2. PAXIL [Concomitant]

REACTIONS (2)
  - NEUROPATHY PERIPHERAL [None]
  - PERONEAL NERVE PALSY [None]
